FAERS Safety Report 8885738 (Version 4)
Quarter: 2013Q1

REPORT INFORMATION
  Report Type: Spontaneous
  Country: FR (occurrence: FR)
  Receive Date: 20121101
  Receipt Date: 20130211
  Transmission Date: 20140127
  Serious: Yes (Other)
  Sender: FDA-Public Use
  Company Number: FR-AMGEN-FRASP2012069688

PATIENT
  Age: 71 Year
  Sex: Male
  Weight: 75 kg

DRUGS (3)
  1. ENBREL [Suspect]
     Indication: PSORIATIC ARTHROPATHY
     Dosage: 50 MG, WEEKLY
     Dates: end: 20121107
  2. CORTICOSTEROID NOS [Suspect]
     Dosage: UNK
  3. PARACETAMOL [Concomitant]
     Dosage: UNK
     Route: 048

REACTIONS (6)
  - Retinopathy [Unknown]
  - Intermediate uveitis [Not Recovered/Not Resolved]
  - Retinal aneurysm [Not Recovered/Not Resolved]
  - Lymphadenopathy mediastinal [Unknown]
  - Ocular sarcoidosis [Not Recovered/Not Resolved]
  - Uveitis [Not Recovered/Not Resolved]
